FAERS Safety Report 6269789-3 (Version None)
Quarter: 2009Q3

REPORT INFORMATION
  Report Type: 
  Country: None (occurrence: None)
  Receive Date: 20090716
  Receipt Date: 20090707
  Transmission Date: 20100115
  Serious: Yes (Hospitalization)
  Sender: FDA-Public Use
  Company Number: FR-SOLVAY-00209003713

PATIENT
  Age: 24359 Day
  Sex: Male

DRUGS (9)
  1. COVERSYL 4 MG [Suspect]
     Indication: HYPERTENSION
     Dosage: DAILY DOSE: 4 MILLIGRAM(S)
     Route: 048
  2. ZINNAT [Suspect]
     Indication: SINUSITIS
     Dosage: DAILY DOSE: 500 MILLIGRAM(S)
     Route: 048
     Dates: start: 20090610, end: 20090614
  3. IMODIUM [Suspect]
     Indication: DIARRHOEA
     Dosage: DAILY DOSE:  UNKNOWN, FREQUENCY: 2 INTAKES
     Route: 048
     Dates: start: 20090613, end: 20090614
  4. DILTIAZEM HCL [Suspect]
     Indication: ANGINA PECTORIS
     Dosage: DAILY DOSE: 180 MILLIGRAM(S)
     Route: 048
  5. KARDEGIC [Suspect]
     Indication: PROPHYLAXIS
     Dosage: DAILY DOSE: 75 MILLIGRAM(S)
     Route: 048
  6. ELISOR [Suspect]
     Indication: HYPERCHOLESTEROLAEMIA
     Dosage: DAILY DOSE: 20 MILLIGRAM(S)
     Route: 048
  7. TRANXENE [Suspect]
     Indication: DRUG USE FOR UNKNOWN INDICATION
     Dosage: DAILY DOSE: 5 MILLIGRAM(S)
     Route: 048
  8. DOLIPRANE [Suspect]
     Indication: DRUG USE FOR UNKNOWN INDICATION
     Dosage: DAILY DOSE: 2 GRAM(S)
     Route: 048
  9. STILNOX [Suspect]
     Indication: INSOMNIA
     Dosage: DAILY DOSE: 10 MILLIGRAM(S)
     Route: 048

REACTIONS (1)
  - COLITIS ISCHAEMIC [None]
